FAERS Safety Report 6140765-4 (Version None)
Quarter: 2009Q2

REPORT INFORMATION
  Report Type: 
  Country: None (occurrence: None)
  Receive Date: 20090402
  Receipt Date: 20090325
  Transmission Date: 20091009
  Serious: Yes (Other)
  Sender: FDA-Public Use
  Company Number: PHEH2009US03015

PATIENT

DRUGS (1)
  1. SANDOSTATIN [Suspect]

REACTIONS (1)
  - HAEMOPTYSIS [None]
